FAERS Safety Report 13350127 (Version 1)
Quarter: 2017Q1

REPORT INFORMATION
  Report Type: Spontaneous
  Country: US (occurrence: US)
  Receive Date: 20170317
  Receipt Date: 20170317
  Transmission Date: 20170429
  Serious: Yes (Hospitalization)
  Sender: FDA-Public Use
  Company Number: None

PATIENT
  Age: 57 Year
  Sex: Male

DRUGS (1)
  1. NEUPOGEN [Suspect]
     Active Substance: FILGRASTIM
     Indication: BRAIN NEOPLASM MALIGNANT
     Dosage: 480MCH DAILY AT BEDTIME SQ
     Route: 058
     Dates: start: 20170218

REACTIONS (1)
  - Hospitalisation [None]
